FAERS Safety Report 20675254 (Version 2)
Quarter: 2022Q2

REPORT INFORMATION
  Report Type: Spontaneous
  Country: PT (occurrence: PT)
  Receive Date: 20220405
  Receipt Date: 20220502
  Transmission Date: 20220721
  Serious: Yes (Other)
  Sender: FDA-Public Use
  Company Number: None

PATIENT
  Age: 47 Year
  Sex: Female

DRUGS (9)
  1. DULOXETINE HYDROCHLORIDE [Interacting]
     Active Substance: DULOXETINE HYDROCHLORIDE
     Indication: Depression
     Dosage: 60 MG, BID
     Route: 048
     Dates: start: 202202
  2. DULOXETINE HYDROCHLORIDE [Interacting]
     Active Substance: DULOXETINE HYDROCHLORIDE
     Dosage: 60 MG, DAILY
     Route: 048
     Dates: end: 20220331
  3. ANAFRANIL [Interacting]
     Active Substance: CLOMIPRAMINE HYDROCHLORIDE
     Indication: Depression
     Dosage: 20 MG, DAILY (PER ONE WEEK)
     Route: 048
     Dates: start: 20220309
  4. ANAFRANIL [Interacting]
     Active Substance: CLOMIPRAMINE HYDROCHLORIDE
     Dosage: 20 MG, BID
     Route: 048
  5. QUETIAPINE [Concomitant]
     Active Substance: QUETIAPINE
     Indication: Product used for unknown indication
     Dosage: UNK, UNKNOWN
     Route: 048
  6. OLANZAPINE [Concomitant]
     Active Substance: OLANZAPINE
     Indication: Product used for unknown indication
     Dosage: UNK, UNKNOWN (SPORADIC USE)
     Route: 048
  7. ALPRAZOLAM [Concomitant]
     Active Substance: ALPRAZOLAM
     Indication: Product used for unknown indication
     Dosage: 1 MG, DAILY
     Route: 048
  8. LAMOTRIGINE [Concomitant]
     Active Substance: LAMOTRIGINE
     Indication: Product used for unknown indication
     Dosage: 25 MG, DAILY
     Route: 048
  9. LAMOTRIGINE [Concomitant]
     Active Substance: LAMOTRIGINE
     Dosage: 50 MG, DAILY (DOSE INCREASED AFTER RAM)
     Route: 048

REACTIONS (17)
  - Blindness transient [Unknown]
  - Blood pressure increased [Unknown]
  - Dizziness [Unknown]
  - Pain [Unknown]
  - Speech disorder [Recovered/Resolved]
  - Hypoacusis [Unknown]
  - Inappropriate affect [Recovered/Resolved]
  - Dyschromatopsia [Unknown]
  - Anxiety [Recovered/Resolved]
  - Headache [Unknown]
  - Urticaria [Unknown]
  - Urticaria [Recovered/Resolved]
  - Aggression [Unknown]
  - Tinnitus [Unknown]
  - Drug interaction [Unknown]
  - Photosensitivity reaction [Unknown]
  - Constipation [Unknown]

NARRATIVE: CASE EVENT DATE: 20220201
